FAERS Safety Report 17400398 (Version 1)
Quarter: 2020Q1

REPORT INFORMATION
  Report Type: Spontaneous
  Country: US (occurrence: US)
  Receive Date: 20200211
  Receipt Date: 20200211
  Transmission Date: 20200409
  Serious: No
  Sender: FDA-Public Use
  Company Number: US-AUROBINDO-AUR-APL-2019-011309

PATIENT
  Age: 62 Year
  Sex: Female

DRUGS (1)
  1. SIMVASTATIN TABLETS USP 10 MG [Suspect]
     Active Substance: SIMVASTATIN
     Indication: BLOOD CHOLESTEROL INCREASED
     Dosage: 10 MILLIGRAM, ONCE A DAY
     Route: 048
     Dates: start: 201901

REACTIONS (2)
  - Muscle spasms [Recovered/Resolved]
  - Pruritus [Recovered/Resolved]
